FAERS Safety Report 16154657 (Version 1)
Quarter: 2019Q2

REPORT INFORMATION
  Report Type: Spontaneous
  Country: KR (occurrence: KR)
  Receive Date: 20190403
  Receipt Date: 20190403
  Transmission Date: 20190711
  Serious: Yes (Congenital Anomaly)
  Sender: FDA-Public Use
  Company Number: KR-ELI_LILLY_AND_COMPANY-KR201903014375

PATIENT
  Age: 52 Year
  Sex: Female

DRUGS (1)
  1. ERBITUX [Suspect]
     Active Substance: CETUXIMAB
     Indication: PRODUCT USED FOR UNKNOWN INDICATION
     Dosage: UNK, UNKNOWN
     Route: 065

REACTIONS (12)
  - Skin wrinkling [Unknown]
  - Flushing [Not Recovered/Not Resolved]
  - Shock [Recovered/Resolved]
  - Hypersensitivity [Recovered/Resolved]
  - Dry skin [Not Recovered/Not Resolved]
  - Skin discolouration [Unknown]
  - Alopecia [Not Recovered/Not Resolved]
  - Pain [Not Recovered/Not Resolved]
  - Acne [Not Recovered/Not Resolved]
  - Skin exfoliation [Unknown]
  - Erythema [Unknown]
  - Nail disorder [Not Recovered/Not Resolved]
